FAERS Safety Report 6940553-2 (Version None)
Quarter: 2010Q3

REPORT INFORMATION
  Report Type: 
  Country: None (occurrence: None)
  Receive Date: 20100825
  Receipt Date: 20100820
  Transmission Date: 20110219
  Serious: Yes (Other)
  Sender: FDA-Public Use
  Company Number: US-BAYER-201026050NA

PATIENT
  Age: 73 Year
  Sex: Male

DRUGS (3)
  1. CIPRO [Suspect]
     Indication: CYSTITIS
     Dosage: TOTAL DAILY DOSE: 1000 MG  UNIT DOSE: 500 MG
     Route: 048
     Dates: start: 20100302, end: 20100301
  2. CIPRO [Suspect]
     Dosage: TOTAL DAILY DOSE: 1000 MG  UNIT DOSE: 500 MG
     Route: 048
     Dates: start: 20100315, end: 20100320
  3. ENTOCORT EC [Concomitant]

REACTIONS (5)
  - ARTHRALGIA [None]
  - CYSTITIS [None]
  - GAIT DISTURBANCE [None]
  - JOINT SWELLING [None]
  - MUSCLE ATROPHY [None]
